FAERS Safety Report 7775768-7 (Version None)
Quarter: 2011Q3

REPORT INFORMATION
  Report Type: 
  Country: None (occurrence: None)
  Receive Date: 20110921
  Receipt Date: 20110601
  Transmission Date: 20111222
  Serious: Yes (Hospitalization)
  Sender: FDA-Public Use
  Company Number: UTC-007574

PATIENT
  Age: 54 Year
  Sex: Female

DRUGS (3)
  1. DIURETICS (DIURETICS) [Concomitant]
  2. TYVASO [Suspect]
     Indication: PULMONARY HYPERTENSION
     Dosage: 18-54 MICROGRAMS (4 IN 1 D), INHALATION
     Route: 055
  3. TRACLEER [Concomitant]

REACTIONS (3)
  - BRONCHITIS [None]
  - SYSTEMIC LUPUS ERYTHEMATOSUS [None]
  - DYSPNOEA [None]
